FAERS Safety Report 5219652-1 (Version None)
Quarter: 2006Q4

REPORT INFORMATION
  Report Type: 
  Country: None (occurrence: None)
  Receive Date: 20061121
  Receipt Date: 20060824
  Transmission Date: 20070319
  Serious: No
  Sender: FDA-Public Use
  Company Number: TPA2006A01488

PATIENT
  Sex: Male

DRUGS (1)
  1. ROZEREM [Suspect]
     Dosage: ONCE, PER ORAL
     Route: 048

REACTIONS (2)
  - HYPERHIDROSIS [None]
  - NIGHTMARE [None]
